FAERS Safety Report 8835744 (Version 1)
Quarter: 2012Q4

REPORT INFORMATION
  Report Type: 
  Country: US (occurrence: US)
  Receive Date: 20121011
  Receipt Date: 20121011
  Transmission Date: 20130627
  Serious: Yes (Other)
  Sender: FDA-Public Use
  Company Number: US-009507513-1111USA02466

PATIENT

DRUGS (8)
  1. FOSAMAX [Suspect]
     Indication: OSTEOPOROSIS
     Route: 048
     Dates: start: 19960101, end: 20090118
  2. FOSAMAX [Suspect]
     Dosage: UNK mg, UNK
     Route: 048
     Dates: start: 20000414, end: 20010918
  3. FOSAMAX [Suspect]
     Dosage: 70 mg, QW
     Route: 048
     Dates: start: 20000414, end: 20090118
  4. FOSAMAX [Suspect]
     Dosage: 70 mg, QW
     Route: 048
     Dates: start: 20011126, end: 20090118
  5. BONIVA [Suspect]
     Indication: OSTEOPOROSIS
     Dosage: UNK mg, UNK
     Route: 048
     Dates: start: 2007, end: 20101105
  6. FOSAMAX D [Suspect]
     Indication: OSTEOPOROSIS
     Route: 048
  7. FOSAMAX [Suspect]
     Indication: OSTEOPOROSIS
     Dosage: UNK mg, UNK
     Route: 048
     Dates: start: 20090217
  8. FOSAMAX [Suspect]
     Route: 048

REACTIONS (27)
  - Breast cancer [Unknown]
  - Renal failure chronic [Not Recovered/Not Resolved]
  - Osteonecrosis of jaw [Unknown]
  - Joint dislocation [Unknown]
  - Tooth extraction [Unknown]
  - Cataract [Unknown]
  - Uterine cervix atrophy [Unknown]
  - Atrophic vulvovaginitis [Unknown]
  - Arthritis [Unknown]
  - Anxiety [Unknown]
  - Exostosis of jaw [Unknown]
  - Oral infection [Unknown]
  - Temperature intolerance [Unknown]
  - Hypercholesterolaemia [Unknown]
  - Tobacco abuse [Unknown]
  - Hypertriglyceridaemia [Unknown]
  - Osteoarthritis [Unknown]
  - Intervertebral disc degeneration [Unknown]
  - Depression [Unknown]
  - Impaired healing [Unknown]
  - Bruxism [Unknown]
  - Sensitivity of teeth [Unknown]
  - Dry mouth [Unknown]
  - Periodontitis [Not Recovered/Not Resolved]
  - Type 2 diabetes mellitus [Unknown]
  - Urticaria [Unknown]
  - Erythema [Unknown]
